FAERS Safety Report 18132507 (Version 1)
Quarter: 2020Q3

REPORT INFORMATION
  Report Type: Spontaneous
  Country: US (occurrence: US)
  Receive Date: 20200811
  Receipt Date: 20200811
  Transmission Date: 20201103
  Serious: No
  Sender: FDA-Public Use
  Company Number: US-009507513-2007USA011820

PATIENT
  Age: 54 Year
  Sex: Female

DRUGS (3)
  1. ALBUTEROL SULFATE. [Suspect]
     Active Substance: ALBUTEROL SULFATE
     Dosage: 2 PUFFS BY MOUTH EVERY HOUR
     Route: 048
     Dates: start: 20200730, end: 20200730
  2. ALBUTEROL SULFATE. [Suspect]
     Active Substance: ALBUTEROL SULFATE
     Indication: ASTHMA
     Dosage: 2 PUFFS BY MOUTH EVERY HOURS
     Route: 048
     Dates: start: 20200730, end: 20200730
  3. ALBUTEROL SULFATE. [Suspect]
     Active Substance: ALBUTEROL SULFATE
     Dosage: UNK

REACTIONS (7)
  - Poor quality device used [Unknown]
  - Device malfunction [Unknown]
  - Product prescribing issue [Unknown]
  - Incorrect dose administered [Unknown]
  - Poor quality device used [Unknown]
  - Device malfunction [Unknown]
  - Product dose omission issue [Unknown]

NARRATIVE: CASE EVENT DATE: 20200730
